FAERS Safety Report 5161595-6 (Version None)
Quarter: 2006Q4

REPORT INFORMATION
  Report Type: 
  Country: None (occurrence: None)
  Receive Date: 20061130
  Receipt Date: 20060920
  Transmission Date: 20070319
  Serious: No
  Sender: FDA-Public Use
  Company Number: US-GLAXOSMITHKLINE-A0620866A

PATIENT
  Age: 34 Year
  Sex: Female

DRUGS (2)
  1. WELLBUTRIN XL [Suspect]
     Route: 048
     Dates: start: 20060427, end: 20060810
  2. ZOLOFT [Concomitant]
     Dosage: 150MG PER DAY
     Route: 048
     Dates: start: 20060112

REACTIONS (4)
  - AKATHISIA [None]
  - ARTHROPATHY [None]
  - ASTHENIA [None]
  - DYSKINESIA [None]
